FAERS Safety Report 5504706-2 (Version None)
Quarter: 2007Q4

REPORT INFORMATION
  Report Type: 
  Country: None (occurrence: None)
  Receive Date: 20071031
  Receipt Date: 20071018
  Transmission Date: 20080405
  Serious: Yes (Other)
  Sender: FDA-Public Use
  Company Number: A-CH2007-18185

PATIENT
  Age: 36 Year
  Sex: Female

DRUGS (2)
  1. TRACLEER [Suspect]
     Indication: DRUG USE FOR UNKNOWN INDICATION
     Dosage: ORAL
     Route: 048
  2. SILDENAFIL (SILDENAFIL) TABLET [Concomitant]

REACTIONS (1)
  - CEREBRAL VASOCONSTRICTION [None]
